FAERS Safety Report 26117579 (Version 2)
Quarter: 2025Q4

REPORT INFORMATION
  Report Type: Report from Study
  Country: EU (occurrence: EU)
  Receive Date: 20251203
  Receipt Date: 20251212
  Transmission Date: 20260119
  Serious: Yes (Other)
  Sender: JOHNSON AND JOHNSON
  Company Number: EU-JNJFOC-20251165397

PATIENT
  Age: 73 Year
  Sex: Male

DRUGS (2)
  1. ERDAFITINIB [Suspect]
     Active Substance: ERDAFITINIB
     Indication: Transitional cell carcinoma metastatic
     Route: 048
     Dates: start: 202508
  2. ERDAFITINIB [Suspect]
     Active Substance: ERDAFITINIB
     Route: 048

REACTIONS (2)
  - Nail discolouration [Recovering/Resolving]
  - Nail infection [Recovering/Resolving]
